FAERS Safety Report 15207887 (Version 1)
Quarter: 2018Q3

REPORT INFORMATION
  Report Type: Spontaneous
  Country: PA (occurrence: PA)
  Receive Date: 20180727
  Receipt Date: 20180727
  Transmission Date: 20181010
  Serious: Yes (Other)
  Sender: FDA-Public Use
  Company Number: PA-PFIZER INC-2018301486

PATIENT
  Age: 80 Year
  Sex: Male

DRUGS (1)
  1. CELEBRA [Suspect]
     Active Substance: CELECOXIB
     Dosage: 400 MG, DAILY

REACTIONS (3)
  - Pleural effusion [Unknown]
  - Oedema peripheral [Unknown]
  - Pulmonary oedema [Unknown]
